FAERS Safety Report 4510263-X (Version None)
Quarter: 2004Q4

REPORT INFORMATION
  Report Type: 
  Country: None (occurrence: None)
  Receive Date: 20041122
  Receipt Date: 20041109
  Transmission Date: 20050328
  Serious: Yes (Hospitalization, Other)
  Sender: FDA-Public Use
  Company Number: 2004090800

PATIENT
  Age: 32 Year
  Sex: Female
  Weight: 106.5953 kg

DRUGS (9)
  1. NORVASC [Suspect]
     Indication: HYPERTENSION
     Dosage: ORAL
     Route: 048
  2. CELEBREX [Suspect]
     Indication: BACK PAIN
     Dosage: ORAL
     Route: 048
  3. OMEPRAZOLE [Concomitant]
  4. ASPIRIN [Concomitant]
  5. DIPHENHYDRAMINE HCL [Concomitant]
  6. QUININE (QUININE) [Concomitant]
  7. ATORVASTATIN CALCIUM [Concomitant]
  8. VICODIN [Concomitant]
  9. LOTRISONE [Concomitant]

REACTIONS (15)
  - ABDOMINAL HERNIA [None]
  - BACK PAIN [None]
  - BLOOD PRESSURE INCREASED [None]
  - CARDIAC FAILURE CONGESTIVE [None]
  - DIZZINESS [None]
  - DYSPHAGIA [None]
  - DYSPNOEA [None]
  - FLUID RETENTION [None]
  - HEADACHE [None]
  - MEDICATION ERROR [None]
  - PHARYNGITIS [None]
  - RESPIRATORY DISORDER [None]
  - TREATMENT NONCOMPLIANCE [None]
  - UTERINE LEIOMYOMA [None]
  - VAGINAL HAEMORRHAGE [None]
